FAERS Safety Report 6814168-0 (Version None)
Quarter: 2010Q3

REPORT INFORMATION
  Report Type: 
  Country: None (occurrence: None)
  Receive Date: 20100702
  Receipt Date: 20100625
  Transmission Date: 20110219
  Serious: Yes (Hospitalization)
  Sender: FDA-Public Use
  Company Number: CH-ASTRAZENECA-2010SE30080

PATIENT
  Age: 21 Year
  Sex: Female

DRUGS (2)
  1. SEROQUEL XR [Suspect]
     Route: 048
     Dates: start: 20091208, end: 20091216
  2. CYMBALTA [Suspect]
     Route: 048
     Dates: start: 20091209, end: 20091214

REACTIONS (2)
  - SINUS TACHYCARDIA [None]
  - SKIN DISORDER [None]
